FAERS Safety Report 6289069-X (Version None)
Quarter: 2009Q3

REPORT INFORMATION
  Report Type: 
  Country: None (occurrence: None)
  Receive Date: 20090729
  Receipt Date: 20090723
  Transmission Date: 20100115
  Serious: Yes (Death, Hospitalization)
  Sender: FDA-Public Use
  Company Number: US-CELGENEUS-163-21880-08071435

PATIENT
  Sex: Male

DRUGS (1)
  1. REVLIMID [Suspect]
     Indication: MULTIPLE MYELOMA
     Route: 048
     Dates: start: 20080428

REACTIONS (8)
  - ASTHENIA [None]
  - DECUBITUS ULCER [None]
  - DEHYDRATION [None]
  - ESCHERICHIA SEPSIS [None]
  - FALL [None]
  - PELVIC FRACTURE [None]
  - PYREXIA [None]
  - SEPTIC SHOCK [None]
